FAERS Safety Report 5598115-8 (Version None)
Quarter: 2008Q1

REPORT INFORMATION
  Report Type: 
  Country: None (occurrence: None)
  Receive Date: 20080122
  Receipt Date: 20080116
  Transmission Date: 20080703
  Serious: Yes (Hospitalization)
  Sender: FDA-Public Use
  Company Number: PHNU2008DE00581

PATIENT
  Sex: Male

DRUGS (1)
  1. ZOMETA [Suspect]
     Indication: PROSTATE CANCER METASTATIC
     Dosage: 4 MG, QMO
     Route: 042
     Dates: start: 20050101

REACTIONS (6)
  - IMPAIRED HEALING [None]
  - ORAL SURGERY [None]
  - OSTEONECROSIS [None]
  - SURGERY [None]
  - TOOTH EXTRACTION [None]
  - TOOTHACHE [None]
